FAERS Safety Report 23591295 (Version 3)
Quarter: 2024Q2

REPORT INFORMATION
  Report Type: Spontaneous
  Country: BA (occurrence: BA)
  Receive Date: 20240304
  Receipt Date: 20240516
  Transmission Date: 20240716
  Serious: Yes (Life-Threatening, Other)
  Sender: FDA-Public Use
  Company Number: BA-SA-SAC20240229001646

PATIENT
  Age: 68 Year
  Sex: Female

DRUGS (9)
  1. ENOXAPARIN SODIUM [Suspect]
     Active Substance: ENOXAPARIN SODIUM
     Indication: Thrombosis prophylaxis
     Dosage: UNK
     Route: 058
     Dates: start: 20240215, end: 20240219
  2. AMLODIPINE [Concomitant]
     Active Substance: AMLODIPINE BESYLATE
     Indication: Hypertension
     Dosage: 10 MG, QD
     Route: 048
  3. CARVEDILOL [Concomitant]
     Active Substance: CARVEDILOL
     Indication: Hypertension
     Dosage: 12.5 MG, QD
  4. SALRES [Concomitant]
     Indication: Asthma
     Dosage: 100 UG, QD
     Route: 055
  5. AMLODIL [AMLODIPINE] [Concomitant]
  6. IRUZID [Concomitant]
  7. BROMAZEPAM [Concomitant]
     Active Substance: BROMAZEPAM
  8. ZALDIAR [Concomitant]
     Active Substance: ACETAMINOPHEN\TRAMADOL HYDROCHLORIDE
  9. PIROXICAM [Concomitant]
     Active Substance: PIROXICAM

REACTIONS (3)
  - Pulmonary embolism [Recovering/Resolving]
  - Syncope [Recovered/Resolved]
  - Drug ineffective [Unknown]

NARRATIVE: CASE EVENT DATE: 20240219
